FAERS Safety Report 6901779-7 (Version None)
Quarter: 2010Q3

REPORT INFORMATION
  Report Type: 
  Country: None (occurrence: None)
  Receive Date: 20100803
  Receipt Date: 20100706
  Transmission Date: 20110219
  Serious: Yes (Other)
  Sender: FDA-Public Use
  Company Number: SN-GILEAD-2009-0022998

PATIENT
  Sex: Female

DRUGS (5)
  1. TRUVADA [Suspect]
     Indication: HIV INFECTION
     Route: 048
     Dates: start: 20080901
  2. TRUVADA [Suspect]
     Route: 048
     Dates: start: 20080901, end: 20081023
  3. NEVIRAPINE [Concomitant]
     Indication: HIV INFECTION
     Route: 048
     Dates: start: 20080901
  4. NEVIRAPINE [Concomitant]
     Dates: start: 20080915, end: 20081023
  5. NEVIRAPINE [Concomitant]
     Dates: start: 20080901, end: 20080914

REACTIONS (2)
  - BREAST CANCER METASTATIC [None]
  - PREGNANCY [None]
